FAERS Safety Report 8351570-2 (Version None)
Quarter: 2012Q2

REPORT INFORMATION
  Report Type: 
  Country: None (occurrence: None)
  Receive Date: 20120511
  Receipt Date: 20120316
  Transmission Date: 20120825
  Serious: Yes (Other)
  Sender: FDA-Public Use
  Company Number: AT-BIOGENIDEC-2012BI016215

PATIENT
  Sex: Female

DRUGS (2)
  1. TYSABRI [Suspect]
     Indication: PRODUCT USED FOR UNKNOWN INDICATION
     Route: 042
     Dates: start: 20070705, end: 20101221
  2. TYSABRI [Suspect]
     Route: 042
     Dates: start: 20110912

REACTIONS (2)
  - CAESAREAN SECTION [None]
  - URINARY TRACT INFECTION [None]
